FAERS Safety Report 17657052 (Version 3)
Quarter: 2020Q2

REPORT INFORMATION
  Report Type: Report from Study
  Country: DE (occurrence: DE)
  Receive Date: 20200410
  Receipt Date: 20200612
  Transmission Date: 20200713
  Serious: Yes (Hospitalization)
  Sender: FDA-Public Use
  Company Number: DE-JNJFOC-20200334804

PATIENT
  Age: 18 Year
  Sex: Male
  Weight: 73 kg

DRUGS (1)
  1. INFLIXIMAB, RECOMBINANT [Suspect]
     Active Substance: INFLIXIMAB
     Indication: CROHN^S DISEASE
     Route: 042
     Dates: start: 20120120, end: 20190704

REACTIONS (1)
  - Testicular germ cell tumour [Recovered/Resolved with Sequelae]

NARRATIVE: CASE EVENT DATE: 20190913
